FAERS Safety Report 4580124-9 (Version None)
Quarter: 2005Q1

REPORT INFORMATION
  Report Type: 
  Country: None (occurrence: None)
  Receive Date: 20050214
  Receipt Date: 20050208
  Transmission Date: 20050727
  Serious: Yes (Hospitalization)
  Sender: FDA-Public Use
  Company Number: JP-MERCK-0502USA01184

PATIENT
  Sex: Male

DRUGS (1)
  1. PRIMAXIN [Suspect]
     Route: 030
     Dates: start: 20050127, end: 20050127

REACTIONS (2)
  - ANAPHYLACTOID REACTION [None]
  - SHOCK [None]
